FAERS Safety Report 6790466-4 (Version None)
Quarter: 2010Q2

REPORT INFORMATION
  Report Type: 
  Country: None (occurrence: None)
  Receive Date: 20100624
  Receipt Date: 20100618
  Transmission Date: 20101027
  Serious: Yes (Hospitalization)
  Sender: FDA-Public Use
  Company Number: NL-ROCHE-704492

PATIENT
  Sex: Male
  Weight: 65 kg

DRUGS (12)
  1. BEVACIZUMAB [Suspect]
     Indication: NON-SMALL CELL LUNG CANCER
     Dosage: LAST DOSE PRIOR TO SAE: 22 APRIL 2010, TEMPORARILY INTERRUPTED
     Route: 042
     Dates: start: 20100303, end: 20100512
  2. BEVACIZUMAB [Suspect]
     Route: 042
     Dates: start: 20100521
  3. CISPLATIN [Suspect]
     Indication: NON-SMALL CELL LUNG CANCER
     Dosage: LAST DOSE PRIOR TO SAE: 21 APRIL 2010, TEMPORARILY INTERRUPTED
     Route: 042
     Dates: start: 20100303, end: 20100512
  4. CISPLATIN [Suspect]
     Route: 042
     Dates: start: 20100521
  5. PEMETREXED [Suspect]
     Indication: NON-SMALL CELL LUNG CANCER
     Dosage: LAST DOSE PRIOR TO SAE: 21 APRIL 2010, TEMPORARILY INTERRUPTED
     Route: 042
     Dates: start: 20100303, end: 20100512
  6. PEMETREXED [Suspect]
     Route: 042
     Dates: start: 20100521
  7. PANTOZOL [Concomitant]
     Dates: start: 20091226
  8. SUCRALFATE [Concomitant]
     Dosage: DRUG START DATE REPORTED AS 15-MARCH-2013.
  9. FOLIC ACID [Concomitant]
     Dates: start: 20100219
  10. ACETYLSALICYLIC ACID [Concomitant]
     Dosage: DRUG REPORTED AS ACETHYLSALISYL ACID
     Dates: start: 20050801
  11. ZOPICLON [Concomitant]
     Dates: start: 20100212
  12. BISOPROLOL [Concomitant]
     Dates: start: 20040902, end: 20100328

REACTIONS (1)
  - RENAL IMPAIRMENT [None]
